FAERS Safety Report 4914284-4 (Version None)
Quarter: 2006Q1

REPORT INFORMATION
  Report Type: 
  Country: None (occurrence: None)
  Receive Date: 20060210
  Receipt Date: 20060201
  Transmission Date: 20060701
  Serious: Yes (Hospitalization, Other)
  Sender: FDA-Public Use
  Company Number: 2005168899

PATIENT
  Age: 30 Year
  Sex: Female
  Weight: 67 kg

DRUGS (4)
  1. PIROXICAM [Suspect]
     Indication: HEADACHE
     Dosage: 20 MG (20 MG, 1 IN 1 D),
     Dates: start: 20050701
  2. CEFUROXIME [Concomitant]
  3. CEFPODOXIME PROXETIL [Concomitant]
  4. SALOFALK ^AVENTIS^ (MESALAZINE) [Concomitant]

REACTIONS (10)
  - CARCINOEMBRYONIC ANTIGEN INCREASED [None]
  - COLITIS ULCERATIVE [None]
  - CONDITION AGGRAVATED [None]
  - GASTRITIS [None]
  - GASTROINTESTINAL HAEMORRHAGE [None]
  - HYPOCHROMIC ANAEMIA [None]
  - OEDEMATOUS PANCREATITIS [None]
  - PANCREATITIS ACUTE [None]
  - SINUSITIS [None]
  - WEIGHT DECREASED [None]
